FAERS Safety Report 6922777-3 (Version None)
Quarter: 2010Q3

REPORT INFORMATION
  Report Type: 
  Country: None (occurrence: None)
  Receive Date: 20100813
  Receipt Date: 20100813
  Transmission Date: 20110219
  Serious: Yes (Hospitalization)
  Sender: FDA-Public Use
  Company Number: None

PATIENT
  Age: 62 Year
  Sex: Male

DRUGS (2)
  1. SODIUM POLYSTYRENE SULFONATE [Suspect]
     Indication: ELECTROCARDIOGRAM ABNORMAL
     Dosage: 170G -50,30,30,60- PO
     Route: 048
     Dates: start: 20020224, end: 20020225
  2. SODIUM POLYSTYRENE SULFONATE [Suspect]
     Indication: HYPERKALAEMIA
     Dosage: 170G -50,30,30,60- PO
     Route: 048
     Dates: start: 20020224, end: 20020225

REACTIONS (5)
  - DISEASE RECURRENCE [None]
  - HAEMORRHAGE [None]
  - INTESTINAL ISCHAEMIA [None]
  - LARGE INTESTINAL ULCER [None]
  - MUCOSAL ULCERATION [None]
